FAERS Safety Report 8918834 (Version 1)
Quarter: 2012Q4

REPORT INFORMATION
  Report Type: Spontaneous
  Country: US (occurrence: None)
  Receive Date: 20121115
  Receipt Date: 20121115
  Transmission Date: 20130627
  Serious: Yes (Other)
  Sender: FDA-Public Use
  Company Number: None

PATIENT
  Age: 66 Year
  Sex: Female

DRUGS (1)
  1. GLEEVEC, 400 MG, NOVARTIS [Suspect]
     Indication: GASTROINTESTINAL STROMAL TUMOR
     Route: 048
     Dates: start: 20120827, end: 20121113

REACTIONS (1)
  - Cyst [None]
